FAERS Safety Report 6766160-2 (Version None)
Quarter: 2010Q2

REPORT INFORMATION
  Report Type: 
  Country: None (occurrence: None)
  Receive Date: 20100611
  Receipt Date: 20100531
  Transmission Date: 20101027
  Serious: Yes (Hospitalization, Disabling, Other)
  Sender: FDA-Public Use
  Company Number: PHHY2010DE30418

PATIENT
  Sex: Male

DRUGS (1)
  1. GLEEVEC [Suspect]
     Indication: CHRONIC EOSINOPHILIC LEUKAEMIA
     Dosage: 100 MG, DAILY
     Route: 048
     Dates: start: 20100414, end: 20100420

REACTIONS (1)
  - CEREBROVASCULAR ACCIDENT [None]
